FAERS Safety Report 4711643-X (Version None)
Quarter: 2005Q2

REPORT INFORMATION
  Report Type: 
  Country: None (occurrence: None)
  Receive Date: 20050629
  Receipt Date: 20050429
  Transmission Date: 20051028
  Serious: No
  Sender: FDA-Public Use
  Company Number: 05P-163-0298839-00

PATIENT
  Age: 63 Year
  Sex: Female
  Weight: 77.1115 kg

DRUGS (21)
  1. HUMIRA [Suspect]
     Indication: RHEUMATOID ARTHRITIS
     Dosage: 40 MG, 1 IN 2 WK, SUBCUTANEOUS
     Route: 058
     Dates: start: 20050201
  2. ROSIGLITAZONE MALEATE [Concomitant]
  3. LOVASTINE [Concomitant]
  4. LOSARTAN POTASSIUM [Concomitant]
  5. FUROSEMIDE [Concomitant]
  6. THYROID TAB [Concomitant]
  7. ATENOLOL [Concomitant]
  8. AMITRIPTYLINE HCL [Concomitant]
  9. METOCLOPRAMIDE [Concomitant]
  10. CLONIDINE [Concomitant]
  11. DICYCLOMINE HCL [Concomitant]
  12. POTASSIUM CHLORIDE [Concomitant]
  13. AMITRIPTYLINE HCL [Concomitant]
  14. NOVOCLONIDINE [Concomitant]
  15. AMLODIPINE BESYLATE [Concomitant]
  16. BUPROPION HYDROCHLORIDE [Concomitant]
  17. FOLIC ACID [Concomitant]
  18. PREDNISONE [Concomitant]
  19. LOVASTATIN [Concomitant]
  20. DIAZEPAM [Concomitant]
  21. HUMULIN INSULIN [Concomitant]

REACTIONS (1)
  - ACCIDENTAL OVERDOSE [None]
